FAERS Safety Report 12498988 (Version 1)
Quarter: 2016Q2

REPORT INFORMATION
  Report Type: Spontaneous
  Country: US (occurrence: None)
  Receive Date: 20160624
  Receipt Date: 20160624
  Transmission Date: 20160815
  Serious: Yes (Hospitalization, Disabling)
  Sender: FDA-Public Use
  Company Number: None

PATIENT
  Age: 60 Year
  Sex: Male
  Weight: 82.56 kg

DRUGS (27)
  1. PRANDIN [Concomitant]
     Active Substance: REPAGLINIDE
  2. ALPRAZOLAM. [Concomitant]
     Active Substance: ALPRAZOLAM
  3. VITAMIN D3 [Concomitant]
     Active Substance: CHOLECALCIFEROL
  4. STOOL SOFTENER [Concomitant]
     Active Substance: DOCUSATE CALCIUM
  5. GLIMEPRIDE [Concomitant]
     Active Substance: GLIMEPIRIDE
  6. DIGITEK [Concomitant]
     Active Substance: DIGOXIN
  7. HYDROCODONE [Concomitant]
     Active Substance: HYDROCODONE
  8. PRILOSEC [Concomitant]
     Active Substance: OMEPRAZOLE MAGNESIUM
  9. INVOKANA [Suspect]
     Active Substance: CANAGLIFLOZIN
     Indication: DIABETES MELLITUS INADEQUATE CONTROL
     Dosage: IN THE MORNING BY MOUTH
     Route: 048
     Dates: start: 20140624, end: 20160620
  10. ELIQUIS [Concomitant]
     Active Substance: APIXABAN
  11. LISINOPRIL. [Concomitant]
     Active Substance: LISINOPRIL
  12. ANDROGEL [Concomitant]
     Active Substance: TESTOSTERONE
  13. COREG [Concomitant]
     Active Substance: CARVEDILOL
  14. ALLOPURINOL. [Concomitant]
     Active Substance: ALLOPURINOL
  15. VITAMIN E [Concomitant]
     Active Substance: .ALPHA.-TOCOPHEROL
  16. GLUCOSAMINE SULFATE [Concomitant]
     Active Substance: GLUCOSAMINE SULFATE
  17. VITAMIN B12 [Concomitant]
     Active Substance: CYANOCOBALAMIN
  18. LIPITOR [Concomitant]
     Active Substance: ATORVASTATIN CALCIUM
  19. CIPROFLOXACIN HCL [Concomitant]
     Active Substance: CIPROFLOXACIN HYDROCHLORIDE
  20. PHENAZOPYDRINE [Concomitant]
  21. COLCRYS [Concomitant]
     Active Substance: COLCHICINE
  22. VITAMIN C [Concomitant]
     Active Substance: ASCORBIC ACID
  23. VITAMIN E [Concomitant]
     Active Substance: .ALPHA.-TOCOPHEROL
  24. FOLIC ACID. [Concomitant]
     Active Substance: FOLIC ACID
  25. PROPAFENONE. [Concomitant]
     Active Substance: PROPAFENONE
  26. METFORMIN [Concomitant]
     Active Substance: METFORMIN HYDROCHLORIDE
  27. MULTIVITAMIN [Concomitant]
     Active Substance: VITAMINS

REACTIONS (14)
  - Product label confusion [None]
  - Prostatic disorder [None]
  - Prostatomegaly [None]
  - Catheter site pain [None]
  - Complication of device insertion [None]
  - Glucose urine present [None]
  - Insomnia [None]
  - Drug ineffective [None]
  - Complication associated with device [None]
  - Complication of device removal [None]
  - Urethral obstruction [None]
  - Dysuria [None]
  - Urinary tract infection [None]
  - Wrong technique in product usage process [None]

NARRATIVE: CASE EVENT DATE: 20160606
